FAERS Safety Report 4847492-1 (Version None)
Quarter: 2005Q4

REPORT INFORMATION
  Report Type: 
  Country: None (occurrence: None)
  Receive Date: 20051207
  Receipt Date: 20051117
  Transmission Date: 20060501
  Serious: Yes (Other)
  Sender: FDA-Public Use
  Company Number: ESWYE154518NOV05

PATIENT
  Age: 50 Year
  Sex: Female

DRUGS (4)
  1. ENBREL [Suspect]
     Indication: RHEUMATOID ARTHRITIS
     Dosage: UNKNOWN
     Route: 058
     Dates: start: 20040501
  2. NIFEDIPINE [Concomitant]
  3. DEFLAZACORT [Concomitant]
  4. DIPYRONE TAB [Concomitant]

REACTIONS (1)
  - ARRHYTHMIA [None]
